FAERS Safety Report 7362469-2 (Version None)
Quarter: 2011Q1

REPORT INFORMATION
  Report Type: 
  Country: None (occurrence: None)
  Receive Date: 20110318
  Receipt Date: 20110307
  Transmission Date: 20110831
  Serious: Yes (Other)
  Sender: FDA-Public Use
  Company Number: US-GENENTECH-315064

PATIENT
  Age: 28 Year
  Sex: Female

DRUGS (10)
  1. PREDNISONE [Suspect]
     Indication: BURKITT'S LYMPHOMA
     Dosage: 100 MG, UNK
     Route: 048
  2. RITUXIMAB [Suspect]
     Indication: BURKITT'S LYMPHOMA
     Dosage: 375 MG/M2, UNK
     Route: 065
  3. CYTARABINE [Suspect]
     Indication: BURKITT'S LYMPHOMA
     Dosage: 70 MG, UNK
     Route: 037
  4. CYTARABINE [Suspect]
     Dosage: UNK
     Route: 042
  5. IFOSFAMIDE [Suspect]
     Indication: BURKITT'S LYMPHOMA
     Dosage: UNK
     Route: 065
  6. CYCLOPHOSPHAMIDE [Suspect]
     Indication: BURKITT'S LYMPHOMA
     Dosage: 800 MG/M2, UNK
     Route: 042
  7. ETOPOSIDE [Suspect]
     Indication: BURKITT'S LYMPHOMA
     Dosage: UNK
     Route: 065
  8. VINCRISTINE [Suspect]
     Indication: BURKITT'S LYMPHOMA
     Dosage: 2 MG, UNK
     Route: 065
  9. DOXORUBICIN HCL [Suspect]
     Indication: BURKITT'S LYMPHOMA
     Dosage: 40 MG/M2, UNK
     Route: 065
  10. MESNA [Suspect]
     Indication: BURKITT'S LYMPHOMA
     Dosage: UNK
     Route: 042

REACTIONS (3)
  - VAGINAL HAEMORRHAGE [None]
  - EROSIVE OESOPHAGITIS [None]
  - FEBRILE NEUTROPENIA [None]
